FAERS Safety Report 20609524 (Version 1)
Quarter: 2022Q1

REPORT INFORMATION
  Report Type: Spontaneous
  Country: US (occurrence: US)
  Receive Date: 20220318
  Receipt Date: 20220318
  Transmission Date: 20220423
  Serious: No
  Sender: FDA-Public Use
  Company Number: US-GSKCCFUS-Case-01320738_AE-76831

PATIENT
  Sex: Female

DRUGS (2)
  1. ARNUITY ELLIPTA [Suspect]
     Active Substance: FLUTICASONE FUROATE
     Indication: Product used for unknown indication
     Dosage: 50 UG EVERY OTHER NIGHT
  2. ARNUITY ELLIPTA [Suspect]
     Active Substance: FLUTICASONE FUROATE
     Indication: Product used for unknown indication
     Dosage: 100 UG

REACTIONS (5)
  - Scab [Not Recovered/Not Resolved]
  - Alopecia [Unknown]
  - Product storage error [Unknown]
  - Underdose [Unknown]
  - Wrong technique in device usage process [Unknown]
